FAERS Safety Report 10434066 (Version 2)
Quarter: 2015Q2

REPORT INFORMATION
  Report Type: Spontaneous
  Country: US (occurrence: US)
  Receive Date: 20140905
  Receipt Date: 20150414
  Transmission Date: 20150821
  Serious: Yes (Hospitalization)
  Sender: FDA-Public Use
  Company Number: US-PFIZER INC-2014244562

PATIENT
  Age: 25 Year
  Sex: Male

DRUGS (3)
  1. HYDROCHLOROTHIAZIDE. [Concomitant]
     Active Substance: HYDROCHLOROTHIAZIDE
     Indication: HYPERTENSION
     Dosage: UNK
  2. PRAZOSIN HCL [Suspect]
     Active Substance: PRAZOSIN HYDROCHLORIDE
     Dosage: 5 MG, 4X/DAY
     Route: 048
  3. PRAZOSIN HCL [Suspect]
     Active Substance: PRAZOSIN HYDROCHLORIDE
     Indication: HYPERTENSION
     Dosage: 30 TABLETS OF 5 MG, SINGLE
     Route: 048

REACTIONS (3)
  - Priapism [Recovered/Resolved]
  - Suicide attempt [Unknown]
  - Intentional overdose [Unknown]
